FAERS Safety Report 6895320-5 (Version None)
Quarter: 2010Q3

REPORT INFORMATION
  Report Type: 
  Country: None (occurrence: None)
  Receive Date: 20100802
  Receipt Date: 20100721
  Transmission Date: 20110219
  Serious: Yes (Hospitalization)
  Sender: FDA-Public Use
  Company Number: IT-PFIZER INC-2006030746

PATIENT
  Age: 75 Year
  Sex: Female
  Weight: 68 kg

DRUGS (11)
  1. SUNITINIB MALATE [Suspect]
     Indication: METASTATIC RENAL CELL CARCINOMA
     Dosage: 50 MG, 1X/DAY
     Route: 048
     Dates: start: 20060210, end: 20060228
  2. LOSARTAN POSTASSIUM [Concomitant]
     Dosage: UNK
     Route: 048
     Dates: end: 20060228
  3. MEDROXYPROGESTERONE [Concomitant]
     Dosage: UNK
     Route: 048
     Dates: start: 20060131
  4. OMEPRAZOLE [Concomitant]
     Dosage: UNK
     Route: 048
     Dates: start: 20060211
  5. SODIUM POLYSTYRENE SULFONATE [Concomitant]
     Dosage: UNK
     Route: 048
     Dates: start: 20060228
  6. ALLOPURINOL [Concomitant]
     Dosage: UNK
     Route: 048
     Dates: start: 20060301
  7. CALCIUM GLUCONATE [Concomitant]
     Dosage: UNK
     Route: 042
     Dates: start: 20060228
  8. FUROSEMIDE [Concomitant]
     Dosage: UNK
     Route: 042
     Dates: start: 20060228
  9. INSULIN RAPID ^PARANOVA^ [Concomitant]
     Dosage: UNK
     Dates: start: 20060228
  10. SODIUM BICARBONATE [Concomitant]
     Dosage: UNK
     Route: 042
     Dates: start: 20060228
  11. CLONIDINE [Concomitant]
     Dosage: UNK
     Route: 030
     Dates: start: 20060228

REACTIONS (5)
  - ASTHENIA [None]
  - DECREASED APPETITE [None]
  - HYPERTENSION [None]
  - RENAL FAILURE [None]
  - SOPOR [None]
